FAERS Safety Report 9826024 (Version 1)
Quarter: 2014Q1

REPORT INFORMATION
  Report Type: Spontaneous
  Country: US (occurrence: None)
  Receive Date: 20140116
  Receipt Date: 20140116
  Transmission Date: 20141002
  Serious: No
  Sender: FDA-Public Use
  Company Number: None

PATIENT
  Age: 66 Year
  Sex: Female
  Weight: 61.24 kg

DRUGS (8)
  1. QVAR [Suspect]
     Indication: ASTHMA
     Dosage: 2 PUFFS
     Route: 055
  2. VITAMIN B [Concomitant]
  3. VITAMIN D [Concomitant]
  4. CALCIUM [Concomitant]
  5. OCUVITE [Concomitant]
  6. FIBER [Concomitant]
  7. MELATONIN [Concomitant]
  8. TYNENOL [Concomitant]

REACTIONS (3)
  - Dizziness [None]
  - Paraesthesia [None]
  - Presyncope [None]
